FAERS Safety Report 8968832 (Version 1)
Quarter: 2012Q4

REPORT INFORMATION
  Report Type: 
  Country: US (occurrence: US)
  Receive Date: 20121218
  Receipt Date: 20121218
  Transmission Date: 20130627
  Serious: No
  Sender: FDA-Public Use
  Company Number: US-BRISTOL-MYERS SQUIBB COMPANY-16360893

PATIENT
  Age: 60 Year
  Sex: Female

DRUGS (5)
  1. ABILIFY [Suspect]
  2. PRISTIQ [Concomitant]
  3. LAMICTAL [Concomitant]
  4. SYNTHROID [Concomitant]
  5. BENICAR HCT [Concomitant]

REACTIONS (1)
  - Tardive dyskinesia [Recovering/Resolving]
